FAERS Safety Report 7782260-2 (Version None)
Quarter: 2011Q3

REPORT INFORMATION
  Report Type: 
  Country: None (occurrence: None)
  Receive Date: 20110927
  Receipt Date: 20110914
  Transmission Date: 20111222
  Serious: Yes (Congenital Anomaly, Other)
  Sender: FDA-Public Use
  Company Number: US-ELI_LILLY_AND_COMPANY-US201008007212

PATIENT

DRUGS (2)
  1. PROZAC [Suspect]
     Route: 064
  2. PROZAC [Suspect]
     Route: 064

REACTIONS (6)
  - VENTRICULAR SEPTAL DEFECT [None]
  - OBSTRUCTIVE AIRWAYS DISORDER [None]
  - DOUBLE OUTLET RIGHT VENTRICLE [None]
  - MATERNAL EXPOSURE DURING PREGNANCY [None]
  - CONGENITAL AORTIC STENOSIS [None]
  - ATRIAL SEPTAL DEFECT [None]
